FAERS Safety Report 7183869-X (Version None)
Quarter: 2010Q4

REPORT INFORMATION
  Report Type: 
  Country: None (occurrence: None)
  Receive Date: 20101210
  Receipt Date: 20101202
  Transmission Date: 20110411
  Serious: Yes (Disabling)
  Sender: FDA-Public Use
  Company Number: 2010MA005040

PATIENT
  Age: 59 Year
  Sex: Male

DRUGS (7)
  1. TRAMADOL HYDROCHLORIDE [Suspect]
     Indication: BACK PAIN
     Dosage: 100 MG;QD;PO
     Route: 048
     Dates: start: 20080101, end: 20101105
  2. AMITRIPTYLINE HYDROCHLORIDE [Suspect]
     Dosage: 20 MG;QD;PO
     Route: 048
     Dates: start: 20080101, end: 20101105
  3. ATENOLOL [Concomitant]
  4. ALLOPURINOL [Concomitant]
  5. CANDESARTAN [Concomitant]
  6. FINASTERIDE [Concomitant]
  7. PREV MEDS [Concomitant]

REACTIONS (2)
  - LOSS OF CONSCIOUSNESS [None]
  - TEMPORAL LOBE EPILEPSY [None]
